FAERS Safety Report 6110090-6 (Version None)
Quarter: 2009Q1

REPORT INFORMATION
  Report Type: 
  Country: None (occurrence: None)
  Receive Date: 20090310
  Receipt Date: 20090303
  Transmission Date: 20090719
  Serious: Yes (Hospitalization)
  Sender: FDA-Public Use
  Company Number: ES-MERCK-0903ESP00005

PATIENT
  Age: 78 Year
  Sex: Male

DRUGS (4)
  1. JANUVIA [Suspect]
     Indication: DIABETES MELLITUS
     Route: 048
     Dates: start: 20090219, end: 20090201
  2. ALLOPURINOL [Suspect]
     Indication: HYPERURICAEMIA
     Route: 048
     Dates: start: 20090219, end: 20090201
  3. ZETIA [Concomitant]
     Indication: DYSLIPIDAEMIA
     Route: 048
     Dates: start: 20090101, end: 20090201
  4. STATIN (UNSPECIFIED) [Concomitant]
     Indication: DYSLIPIDAEMIA
     Route: 048
     Dates: start: 20090101, end: 20090201

REACTIONS (12)
  - DEHYDRATION [None]
  - DIARRHOEA [None]
  - DRUG INTERACTION [None]
  - DYSPHAGIA [None]
  - EOSINOPHILIA [None]
  - HYPOKALAEMIA [None]
  - MOUTH HAEMORRHAGE [None]
  - ORAL MUCOSAL EXFOLIATION [None]
  - PYREXIA [None]
  - RENAL FAILURE [None]
  - URTICARIA [None]
  - VOMITING [None]
